FAERS Safety Report 7501340-X (Version None)
Quarter: 2011Q2

REPORT INFORMATION
  Report Type: 
  Country: None (occurrence: None)
  Receive Date: 20110524
  Receipt Date: 20110516
  Transmission Date: 20111010
  Serious: Yes (Death)
  Sender: FDA-Public Use
  Company Number: US-GILEAD-2011-0037056

PATIENT
  Sex: Female

DRUGS (1)
  1. LETAIRIS [Suspect]
     Indication: PRODUCT USED FOR UNKNOWN INDICATION
     Route: 048
     Dates: start: 20100901

REACTIONS (7)
  - CHRONIC RESPIRATORY FAILURE [None]
  - CARDIAC FAILURE CONGESTIVE [None]
  - HYPERCAPNIA [None]
  - H1N1 INFLUENZA [None]
  - MYCOPLASMA TEST POSITIVE [None]
  - CHRONIC OBSTRUCTIVE PULMONARY DISEASE [None]
  - TOBACCO ABUSE [None]
